FAERS Safety Report 7342794-1 (Version None)
Quarter: 2011Q1

REPORT INFORMATION
  Report Type: 
  Country: None (occurrence: None)
  Receive Date: 20110310
  Receipt Date: 20091130
  Transmission Date: 20110831
  Serious: Yes (Death, Hospitalization)
  Sender: FDA-Public Use
  Company Number: US-BAYER-200941102NA

PATIENT
  Sex: Male
  Weight: 78.005 kg

DRUGS (29)
  1. EPINEPHRINE [Concomitant]
  2. PLASMA [Concomitant]
     Dosage: 2 U, UNK
     Dates: start: 20040122
  3. ATENOLOL [Concomitant]
     Dosage: 50 MG, QD
     Route: 048
     Dates: start: 20020101
  4. LEVOPHED [Concomitant]
  5. ALBUMIN (HUMAN) [Concomitant]
     Dosage: UNK
     Dates: start: 20040122
  6. NORMOSOL [Concomitant]
     Dosage: 2000 ML, UNK
     Dates: start: 20040121, end: 20040121
  7. PLATELETS [Concomitant]
     Dosage: 2 U, UNK
     Dates: start: 20040121
  8. LIPITOR [Concomitant]
     Dosage: 10 MG, QD
     Route: 048
     Dates: start: 20000101
  9. HEPARIN [Concomitant]
     Dosage: 10000 U, UNK
     Dates: start: 20040121, end: 20040121
  10. ALBUMIN (HUMAN) [Concomitant]
     Dosage: 25 G, UNK
     Dates: start: 20040121, end: 20040121
  11. VERSED [Concomitant]
     Dosage: 3 MG, UNK
     Route: 042
     Dates: start: 20040121, end: 20040121
  12. SEVOFLURANE [Concomitant]
     Dosage: UNK
     Dates: start: 20040121, end: 20040121
  13. DOBUTREX [Concomitant]
  14. MAGNESIUM SULFATE [Concomitant]
     Dosage: 2 G, UNK
     Route: 042
     Dates: start: 20040121, end: 20040121
  15. ETOMIDATE [Concomitant]
     Dosage: 20 MG, UNK
     Route: 042
     Dates: start: 20040121, end: 20040121
  16. TRASYLOL [Suspect]
     Indication: CORONARY ARTERY BYPASS
     Dosage: UNK
     Route: 042
     Dates: start: 20040121, end: 20040121
  17. TRASYLOL [Suspect]
     Indication: AORTIC VALVE REPLACEMENT
  18. MANNITOL [Concomitant]
     Dosage: 12.5 G, UNK
     Dates: start: 20040121, end: 20040121
  19. SUCCINYLCHOLINE CHLORIDE [Concomitant]
     Dosage: 110 MG, UNK
     Route: 042
     Dates: start: 20040121, end: 20040121
  20. PROTAMINE SULFATE [Concomitant]
     Dosage: 370 MG, UNK
     Route: 042
     Dates: start: 20040121, end: 20040121
  21. MILRINONE [Concomitant]
     Dosage: UNK
     Route: 042
     Dates: start: 20040121, end: 20040121
  22. PLASMA [Concomitant]
     Dosage: 4 U, UNK
     Dates: start: 20040121
  23. TOPROL-XL [Concomitant]
     Dosage: 50 MG, QD
     Route: 048
     Dates: start: 20020101, end: 20040101
  24. VANCOMYCIN [Concomitant]
     Dosage: 1 G, UNK
     Route: 042
     Dates: start: 20040121
  25. NITROGLYCERIN [Concomitant]
     Dosage: UNK
     Dates: start: 20040121, end: 20040121
  26. DOPAMINE [Concomitant]
     Dosage: UNK
  27. SODIUM BICARBONATE [Concomitant]
     Dosage: 44.6 MEQ, UNK
     Dates: start: 20040121, end: 20040121
  28. LIDOCAINE [Concomitant]
     Dosage: UNK
     Route: 042
     Dates: start: 20040121, end: 20040121
  29. HEPARIN [Concomitant]
     Dosage: 35000 U, UNK
     Route: 042
     Dates: start: 20040121, end: 20040121

REACTIONS (13)
  - RENAL IMPAIRMENT [None]
  - PAIN [None]
  - RENAL INJURY [None]
  - INJURY [None]
  - MULTI-ORGAN FAILURE [None]
  - RENAL FAILURE [None]
  - EMOTIONAL DISTRESS [None]
  - STRESS [None]
  - UNEVALUABLE EVENT [None]
  - ANHEDONIA [None]
  - DEATH [None]
  - ANXIETY [None]
  - FEAR [None]
